FAERS Safety Report 19439117 (Version 1)
Quarter: 2021Q2

REPORT INFORMATION
  Report Type: Spontaneous
  Country: US (occurrence: US)
  Receive Date: 20210618
  Receipt Date: 20210618
  Transmission Date: 20210717
  Serious: Yes (Other)
  Sender: FDA-Public Use
  Company Number: US-BAUSCH-BL-2021-021012

PATIENT
  Age: 78 Year
  Sex: Female

DRUGS (31)
  1. ANUSOL HC [Suspect]
     Active Substance: HYDROCORTISONE
     Indication: PRODUCT USED FOR UNKNOWN INDICATION
     Dosage: REFILL: 2?APPLY AS NEEDED TWICE DAILY
     Route: 065
     Dates: start: 20190925
  2. VOLTAREN [Concomitant]
     Active Substance: DICLOFENAC SODIUM
     Indication: PRODUCT USED FOR UNKNOWN INDICATION
     Dosage: REFILL: 5, START DATE: 26/MAR/2020?APPLY 2 GRAM TO AFFECTED AREA
  3. FEROSUL [Concomitant]
     Active Substance: FERROUS SULFATE
     Indication: PRODUCT USED FOR UNKNOWN INDICATION
     Dosage: REFILL: 3, START DATE: 11/NOV/2020
     Route: 048
  4. NEURONTIN [Concomitant]
     Active Substance: GABAPENTIN
     Indication: PRODUCT USED FOR UNKNOWN INDICATION
     Dosage: REFILL: 1, START DATE: 12/OCT/2020
     Route: 048
  5. POTASSIUM CHLORIDE. [Concomitant]
     Active Substance: POTASSIUM CHLORIDE
     Indication: BLOOD POTASSIUM DECREASED
     Dosage: 20 MEQ?REFILL: 3, STOP DATE:11/NOV/2021
     Route: 048
     Dates: start: 20201111
  6. XIFAXAN [Concomitant]
     Active Substance: RIFAXIMIN
     Indication: PRODUCT USED FOR UNKNOWN INDICATION
     Dosage: REFILL: 11, START DATE: 19/MAY/2021
     Route: 048
  7. MURO 128 [Suspect]
     Active Substance: SODIUM CHLORIDE
     Indication: PRODUCT USED FOR UNKNOWN INDICATION
     Dosage: REFILL:1 STOP DATE: 17/MAY/2022?1 DROP IN EACH EYE EVERY 4 HOURS AS NEEDED
     Route: 047
     Dates: start: 20210517
  8. ASPIRIN. [Concomitant]
     Active Substance: ASPIRIN
     Indication: PRODUCT USED FOR UNKNOWN INDICATION
     Dosage: REFILL: 0; START DATE: 23/JUL/2019
     Route: 048
  9. KETOCONAZOLE. [Concomitant]
     Active Substance: KETOCONAZOLE
     Indication: PRODUCT USED FOR UNKNOWN INDICATION
     Dosage: REFILL: 5,START DT:11/FEB/2021; MASSAGE INTO SCALP + RINSE THOROUGHLY WHEN BATHING
  10. SLOW?MAG [Concomitant]
     Active Substance: MAGNESIUM CHLORIDE
     Indication: PRODUCT USED FOR UNKNOWN INDICATION
     Dosage: 71.5?119 MG ?REFILL: 0, START DATE: 11/NOV/2020
     Route: 048
  11. DITROPAN XL [Concomitant]
     Active Substance: OXYBUTYNIN CHLORIDE
     Indication: PRODUCT USED FOR UNKNOWN INDICATION
     Dosage: REFILL: 3, START DATE: 23/SEP/2020, STOP DATE: 23/SEP/2021
     Route: 048
  12. FLEXERIL [Concomitant]
     Active Substance: CYCLOBENZAPRINE HYDROCHLORIDE
     Indication: MUSCLE SPASMS
     Dosage: REFILL: 1; END DATE: 15/JAN/2022?EVERY 8 HOURS AS NEEDED
     Route: 048
     Dates: start: 20210115
  13. ARICEPT [Concomitant]
     Active Substance: DONEPEZIL HYDROCHLORIDE
     Indication: PRODUCT USED FOR UNKNOWN INDICATION
     Dosage: REFILL: 3, START DATE: 31/MAR/2021?EVERY NIGHT
     Route: 048
  14. LIDEX [Concomitant]
     Active Substance: FLUOCINONIDE
     Indication: ERYTHEMA
     Dosage: REFILL: 1, START DATE: 18/OCT/2018?APPLY IN AFFECTED AREA OF SCALE AT BEDTIME AS NEEDED
  15. LIDEX [Concomitant]
     Active Substance: FLUOCINONIDE
     Indication: SKIN EXFOLIATION
  16. PRILOSEC [Concomitant]
     Active Substance: OMEPRAZOLE MAGNESIUM
     Indication: PRODUCT USED FOR UNKNOWN INDICATION
     Dosage: REFILL: 3, START DATE: 26/AUG/2020, STOP DATE: 23/SEP/2021
     Route: 048
  17. VITAMIN D [Concomitant]
     Active Substance: VITAMIN D NOS
     Indication: PRODUCT USED FOR UNKNOWN INDICATION
     Route: 048
     Dates: end: 20210524
  18. ALBUTEROL. [Concomitant]
     Active Substance: ALBUTEROL
     Indication: PRODUCT USED FOR UNKNOWN INDICATION
     Dosage: 1 PUFF EVERY 6 HOURS AS NEEDED; ?REFILL: 1; START DATE: 2/DEC/2020
  19. LASIX [Concomitant]
     Active Substance: FUROSEMIDE
     Indication: PRODUCT USED FOR UNKNOWN INDICATION
     Dosage: REFILL: 11, START DATE: 6/JAN/2021, END DATE: 6/JAN/2022
     Route: 048
  20. MELATIN PO [Concomitant]
     Indication: PRODUCT USED FOR UNKNOWN INDICATION
     Route: 048
     Dates: end: 20210525
  21. CHRONULAC [Concomitant]
     Active Substance: LACTULOSE
     Indication: PRODUCT USED FOR UNKNOWN INDICATION
     Dosage: 20 GM/30ML, RIFILL:5, START DATE: 21/OCT/2020, TAKE 30 MLS (20 G TOTAL)
     Route: 048
  22. FLONASE [Concomitant]
     Active Substance: FLUTICASONE PROPIONATE
     Indication: PRODUCT USED FOR UNKNOWN INDICATION
     Dosage: REFILL: 3, START DATE:23/NOV/2020?SHAKE LIQUID AND USE 1 SPRAY IN EACH NOSTRIL DAILY
     Route: 045
  23. CIPRO [Concomitant]
     Active Substance: CIPROFLOXACIN HYDROCHLORIDE
     Indication: PRODUCT USED FOR UNKNOWN INDICATION
     Dosage: REFILL: 0
     Route: 048
     Dates: start: 20210518, end: 20210523
  24. MEVACOR [Concomitant]
     Active Substance: LOVASTATIN
     Indication: PRODUCT USED FOR UNKNOWN INDICATION
     Dosage: REFILL: 3, START DATE: 26/MAR/2021
     Route: 048
  25. MULTI VITAMIN [Concomitant]
     Active Substance: VITAMINS
     Indication: PRODUCT USED FOR UNKNOWN INDICATION
     Route: 048
  26. BIOTIN PO [Concomitant]
     Indication: PRODUCT USED FOR UNKNOWN INDICATION
     Route: 048
     Dates: end: 20210524
  27. MOBIC [Concomitant]
     Active Substance: MELOXICAM
     Indication: PRODUCT USED FOR UNKNOWN INDICATION
     Route: 048
  28. INDERAL [Concomitant]
     Active Substance: PROPRANOLOL HYDROCHLORIDE
     Indication: PRODUCT USED FOR UNKNOWN INDICATION
     Dosage: REFILL: 3, START DATE: 26/APR/2021, STOP DATE: 26/APR/2022
     Route: 048
  29. ULTRAM [Concomitant]
     Active Substance: TRAMADOL HYDROCHLORIDE
     Indication: PAIN
     Dosage: REFILL:0?1 TABLET EVERY 6 HOURS AS NEEDED
     Route: 048
     Dates: start: 20210115, end: 20210519
  30. TURMERIC [Concomitant]
     Active Substance: HERBALS\TURMERIC
     Indication: PRODUCT USED FOR UNKNOWN INDICATION
     Dosage: 1000 MG DAILY
     Route: 048
     Dates: end: 20210524
  31. EFFEXOR XR [Concomitant]
     Active Substance: VENLAFAXINE HYDROCHLORIDE
     Indication: PRODUCT USED FOR UNKNOWN INDICATION
     Dosage: REFILL:3, START DATE: 5/OCT/2020
     Route: 048

REACTIONS (1)
  - Escherichia urinary tract infection [Unknown]

NARRATIVE: CASE EVENT DATE: 2021
